FAERS Safety Report 11992032 (Version 1)
Quarter: 2016Q1

REPORT INFORMATION
  Report Type: Spontaneous
  Country: US (occurrence: US)
  Receive Date: 20160203
  Receipt Date: 20160203
  Transmission Date: 20160526
  Serious: No
  Sender: FDA-Public Use
  Company Number: US-JNJFOC-20151206744

PATIENT
  Age: 87 Year
  Sex: Male

DRUGS (1)
  1. TYLENOL EXTRA STRENGTH [Suspect]
     Active Substance: ACETAMINOPHEN
     Indication: ANALGESIC THERAPY
     Dosage: 2 CAPLETS AS NEEDED, SOMETIMES TAKE UP TO 10 CAPLETS IN A DAY
     Route: 048

REACTIONS (1)
  - Incorrect dose administered [Unknown]
